FAERS Safety Report 10776334 (Version 1)
Quarter: 2015Q1

REPORT INFORMATION
  Report Type: Spontaneous
  Country: US (occurrence: None)
  Receive Date: 20150205
  Receipt Date: 20150205
  Transmission Date: 20150721
  Serious: Yes (Other)
  Sender: FDA-Public Use
  Company Number: None

PATIENT
  Age: 42 Year
  Sex: Female
  Weight: 58.06 kg

DRUGS (14)
  1. BACLOFEN. [Concomitant]
     Active Substance: BACLOFEN
  2. MINERAL OIL. [Concomitant]
     Active Substance: MINERAL OIL
  3. DIALUADID [Concomitant]
  4. TRILEPTAL DAILY FOR THE LAST 6 MONTHS [Concomitant]
  5. CABERGOLINE. [Concomitant]
     Active Substance: CABERGOLINE
  6. CLONIDINE. [Concomitant]
     Active Substance: CLONIDINE
  7. MIRALAX [Concomitant]
     Active Substance: POLYETHYLENE GLYCOL 3350
  8. OMEPRAZOLE. [Concomitant]
     Active Substance: OMEPRAZOLE
  9. KLONOPIN [Concomitant]
     Active Substance: CLONAZEPAM
  10. MULTIVITAMIN [Concomitant]
     Active Substance: VITAMINS
  11. CHONDROITIN SULFATE (BOVINE)\GLUCOSAMINE SULFATE [Concomitant]
     Active Substance: CHONDROITIN SULFATE (BOVINE)\GLUCOSAMINE SULFATE
  12. BUPIVACAINE VIA INTRATHECAL PUMP [Concomitant]
  13. DUAVEE [Suspect]
     Active Substance: BAZEDOXIFENE ACETATE\ESTROGENS, CONJUGATED
     Indication: BLOOD OESTROGEN DECREASED
     Route: 048
     Dates: start: 20141123
  14. OXYCODONE [Concomitant]
     Active Substance: OXYCODONE

REACTIONS (3)
  - Abdominal pain [None]
  - Alopecia [None]
  - Menstrual disorder [None]

NARRATIVE: CASE EVENT DATE: 20141130
